FAERS Safety Report 4462650-6 (Version None)
Quarter: 2004Q3

REPORT INFORMATION
  Report Type: 
  Country: None (occurrence: None)
  Receive Date: 20040929
  Receipt Date: 20040429
  Transmission Date: 20050211
  Serious: Yes (Death)
  Sender: FDA-Public Use
  Company Number: 800138

PATIENT
  Age: 62 Year
  Sex: Male
  Weight: 89.8122 kg

DRUGS (18)
  1. DIANEAL [Suspect]
     Indication: PERITONEAL DIALYSIS
     Dosage: 12 L; INTRAPERITONEAL
     Route: 033
     Dates: start: 20030401, end: 20040403
  2. NEPHRO-VITE RX [Concomitant]
  3. LISINOPRIL [Concomitant]
  4. LASIX [Concomitant]
  5. CARBEDILOL [Concomitant]
  6. CALCIUM CARBONATE [Concomitant]
  7. FOLIC ACID [Concomitant]
  8. GABAPENTIN [Concomitant]
  9. CALCIUM [Concomitant]
  10. ASPIRIN [Concomitant]
  11. POTASSIUM CHLORIDE [Concomitant]
  12. SIMVASTATIN [Concomitant]
  13. RABEPRAZOLE SODIUM [Concomitant]
  14. ATROVENT [Concomitant]
  15. ALBUTEROL [Concomitant]
  16. BENADRYL ^WQRNER-LAMBERT^ [Concomitant]
  17. GUAIFENESIN DM [Concomitant]
  18. MUPIROCIN [Concomitant]

REACTIONS (8)
  - ABDOMINAL PAIN [None]
  - BRAIN HYPOXIA [None]
  - CARDIAC ARREST [None]
  - CHEST PAIN [None]
  - DYSPNOEA [None]
  - FLUID RETENTION [None]
  - RESPIRATORY FAILURE [None]
  - TREATMENT NONCOMPLIANCE [None]
